FAERS Safety Report 6617844-8 (Version None)
Quarter: 2010Q1

REPORT INFORMATION
  Report Type: 
  Country: None (occurrence: None)
  Receive Date: 20100308
  Receipt Date: 20100304
  Transmission Date: 20100710
  Serious: Yes (Death, Hospitalization, Other)
  Sender: FDA-Public Use
  Company Number: PHEH2009US04127

PATIENT
  Sex: Male

DRUGS (18)
  1. EXJADE [Suspect]
     Indication: MYELODYSPLASTIC SYNDROME
     Dosage: 1500 MG, QD
     Route: 048
     Dates: start: 20090101
  2. EXJADE [Suspect]
     Indication: IRON OVERLOAD
     Dosage: 2000 MG DAILY
     Route: 048
     Dates: start: 20090105
  3. EXJADE [Suspect]
     Dosage: 500 MG, BID
     Route: 048
  4. ASPIRIN [Concomitant]
     Indication: CORONARY ARTERY DISEASE
     Dosage: 81 MG, QD
     Route: 048
  5. LASIX [Concomitant]
     Indication: HYPERTENSION
     Dosage: 20 MEQ/KG, QD
     Route: 048
  6. LASIX [Concomitant]
     Indication: OEDEMA
     Dosage: 40 MG, BID
     Route: 048
  7. LASIX [Concomitant]
     Dosage: NO TREATMENT
  8. LASIX [Concomitant]
     Dosage: UNK
  9. PROPRANOLOL [Concomitant]
     Indication: VARICES OESOPHAGEAL
     Dosage: UNK
     Route: 048
  10. MOTRIN [Concomitant]
     Dosage: PRN PAIN
     Route: 048
  11. ALDACTONE [Concomitant]
     Indication: OEDEMA
     Dosage: 150 MG, QD
     Route: 048
  12. POTASSIUM CHLORIDE [Concomitant]
     Indication: ELECTROLYTE SUBSTITUTION THERAPY
     Dosage: 8 MEQ, QD
     Route: 048
  13. SYNTHROID [Concomitant]
     Indication: HYPOTHYROIDISM
     Dosage: 50 MCG, QD
     Route: 048
  14. PRILOSEC [Concomitant]
     Indication: VARICES OESOPHAGEAL
     Dosage: 40 MG, QD
     Route: 048
  15. VITAMIN B COMPLEX CAP [Concomitant]
     Indication: SUPPLEMENTATION THERAPY
     Dosage: ONE TAB, QD
     Route: 048
  16. FISH OIL [Concomitant]
     Indication: SUPPLEMENTATION THERAPY
     Dosage: ONE TAB, QD
     Route: 048
  17. GLUCOSAMINE [Concomitant]
     Indication: SUPPLEMENTATION THERAPY
     Dosage: ONE TAB, QD
     Route: 048
  18. VITAMIN D [Concomitant]
     Dosage: 50000 U, UNK

REACTIONS (12)
  - ABDOMINAL DISTENSION [None]
  - ASCITES [None]
  - BLOOD ALBUMIN DECREASED [None]
  - BLOOD CREATININE INCREASED [None]
  - DEATH [None]
  - FAECES DISCOLOURED [None]
  - FATIGUE [None]
  - HAEMORRHAGE [None]
  - HYPOTENSION [None]
  - IRON OVERLOAD [None]
  - NEUTROPHIL COUNT DECREASED [None]
  - OEDEMA [None]
